FAERS Safety Report 7637716-X (Version None)
Quarter: 2011Q3

REPORT INFORMATION
  Report Type: 
  Country: None (occurrence: None)
  Receive Date: 20110727
  Receipt Date: 20110718
  Transmission Date: 20111222
  Serious: Yes (Hospitalization)
  Sender: FDA-Public Use
  Company Number: FR-BRISTOL-MYERS SQUIBB COMPANY-15912777

PATIENT
  Age: 54 Year
  Sex: Male

DRUGS (1)
  1. ORENCIA [Suspect]
     Indication: MUSCULOSKELETAL PAIN
     Dosage: LAST INFUSION (NO: 15) ON 26MAY11
     Route: 042
     Dates: start: 20091201

REACTIONS (2)
  - OPHTHALMOPLEGIA [None]
  - POLYNEUROPATHY [None]
